FAERS Safety Report 8879006 (Version 1)
Quarter: 2012Q4

REPORT INFORMATION
  Report Type: 
  Country: CA (occurrence: CA)
  Receive Date: 20121026
  Receipt Date: 20121026
  Transmission Date: 20130627
  Serious: Yes (Death)
  Sender: FDA-Public Use
  Company Number: CA-JNJFOC-20121011855

PATIENT
  Age: 5 None
  Sex: Male

DRUGS (4)
  1. ETRAVIRINE [Suspect]
     Indication: PRODUCT USED FOR UNKNOWN INDICATION
     Route: 065
  2. TENOFOVIR DISOPROXIL FUMARATE [Suspect]
     Indication: HIV INFECTION
     Route: 065
  3. ENTECAVIR [Concomitant]
     Route: 065
  4. RALTEGRAVIR [Concomitant]
     Route: 065

REACTIONS (1)
  - Renal failure [Fatal]
